FAERS Safety Report 6904486-X (Version None)
Quarter: 2010Q3

REPORT INFORMATION
  Report Type: 
  Country: None (occurrence: None)
  Receive Date: 20100804
  Receipt Date: 20090601
  Transmission Date: 20110219
  Serious: No
  Sender: FDA-Public Use
  Company Number: US-PFIZER INC-2009177348

PATIENT
  Sex: Female
  Weight: 76.19 kg

DRUGS (8)
  1. LYRICA [Suspect]
     Indication: RESTLESS LEGS SYNDROME
     Dosage: 150 MG, 2X/DAY
     Dates: start: 20080701, end: 20090225
  2. KLOR-CON [Concomitant]
     Dosage: UNK
  3. MOBIC [Concomitant]
     Dosage: UNK
  4. PANTOPRAZOLE [Concomitant]
     Indication: GASTRIC DISORDER
     Dosage: UNK
  5. SYNTHROID [Concomitant]
     Indication: THYROID DISORDER
     Dosage: UNK
  6. CARTIA XT [Concomitant]
     Indication: HYPERTENSION
     Dosage: UNK
  7. CAPTOPRIL [Concomitant]
     Dosage: UNK
  8. CARBIDOPA [Concomitant]
     Dosage: UNK

REACTIONS (4)
  - CONSTIPATION [None]
  - DRUG INEFFECTIVE [None]
  - MUSCLE TWITCHING [None]
  - OEDEMA PERIPHERAL [None]
